FAERS Safety Report 10464412 (Version 1)
Quarter: 2014Q3

REPORT INFORMATION
  Report Type: Spontaneous
  Country: US (occurrence: US)
  Receive Date: 20140919
  Receipt Date: 20140919
  Transmission Date: 20150326
  Serious: Yes (Hospitalization)
  Sender: FDA-Public Use
  Company Number: PHHY2014US117211

PATIENT
  Age: 78 Year
  Sex: Female

DRUGS (1)
  1. SULFAMETHOXAZOLE+TRIMETHOPRIM SANDOZ [Suspect]
     Active Substance: SULFAMETHOXAZOLE\TRIMETHOPRIM
     Indication: HUMAN EHRLICHIOSIS

REACTIONS (12)
  - Cardiac failure [Recovered/Resolved]
  - Myalgia [Recovered/Resolved]
  - Myocarditis [Recovered/Resolved]
  - Pyrexia [Recovered/Resolved]
  - Electrocardiogram ST segment elevation [Recovered/Resolved]
  - Fatigue [Recovered/Resolved]
  - Pulmonary congestion [Recovered/Resolved]
  - Chills [Recovered/Resolved]
  - Myocardial necrosis marker increased [Recovered/Resolved]
  - Syncope [Recovered/Resolved]
  - Dyspnoea [Recovered/Resolved]
  - Left ventricular dysfunction [Recovered/Resolved]
